FAERS Safety Report 12521392 (Version 1)
Quarter: 2016Q3

REPORT INFORMATION
  Report Type: Spontaneous
  Country: US (occurrence: US)
  Receive Date: 20160701
  Receipt Date: 20160701
  Transmission Date: 20161109
  Serious: No
  Sender: FDA-Public Use
  Company Number: US-PFIZER INC-2016326738

PATIENT
  Age: 65 Year
  Sex: Female
  Weight: 109 kg

DRUGS (1)
  1. LYRICA [Suspect]
     Active Substance: PREGABALIN
     Indication: DIABETIC NEUROPATHY
     Dosage: 75 MG, 2X/DAY (TWO A DAY, ONE IN MORNING AND ONE AT NIGHT)
     Route: 048
     Dates: start: 201603

REACTIONS (1)
  - Drug effect incomplete [Unknown]
